FAERS Safety Report 8169525-X (Version None)
Quarter: 2012Q1

REPORT INFORMATION
  Report Type: 
  Country: None (occurrence: None)
  Receive Date: 20120228
  Receipt Date: 20120222
  Transmission Date: 20120608
  Serious: Yes (Other)
  Sender: FDA-Public Use
  Company Number: FR-AMGEN-FRASP2012011840

PATIENT
  Age: 50 Year
  Sex: Female

DRUGS (4)
  1. EPIRUBICIN [Concomitant]
  2. NEULASTA [Suspect]
     Indication: CHEMOTHERAPY
     Dosage: UNK
     Dates: start: 20120217
  3. FLUOROURACIL [Concomitant]
  4. CYCLOPHOSPHAMIDE [Concomitant]

REACTIONS (1)
  - FEBRILE BONE MARROW APLASIA [None]
